FAERS Safety Report 19174784 (Version 3)
Quarter: 2022Q1

REPORT INFORMATION
  Report Type: Spontaneous
  Country: DE (occurrence: None)
  Receive Date: 20210423
  Receipt Date: 20220120
  Transmission Date: 20220424
  Serious: Yes (Death, Other)
  Sender: FDA-Public Use
  Company Number: 2021A338875

PATIENT
  Age: 35 Year
  Sex: Female
  Weight: 80 kg

DRUGS (9)
  1. METOPROLOL SUCCINATE [Interacting]
     Active Substance: METOPROLOL SUCCINATE
     Indication: Hypertensive crisis
     Dosage: 23,5 MG 1-0-0-0
     Route: 048
     Dates: start: 20140913
  2. METOPROLOL SUCCINATE [Interacting]
     Active Substance: METOPROLOL SUCCINATE
     Indication: Essential hypertension
     Dosage: 23,5 MG 1-0-0-0
     Route: 048
     Dates: start: 20140913
  3. QUETIAPINE [Interacting]
     Active Substance: QUETIAPINE
     Indication: Acute psychosis
     Dosage: 300 MG 0-0-0-1
     Route: 048
     Dates: start: 2021
  4. PROMETHAZINE [Interacting]
     Active Substance: PROMETHAZINE HYDROCHLORIDE
     Indication: Acute psychosis
     Dosage: 25 MG 1 ST MAX 44X/24 H 4 H
     Route: 048
     Dates: start: 20200731
  5. INDAPAMIDE\PERINDOPRIL ARGININE [Interacting]
     Active Substance: INDAPAMIDE\PERINDOPRIL ARGININE
     Indication: Hypertensive crisis
     Dosage: 5 MG / 1,25 MG 1-0-0-0
     Route: 048
     Dates: start: 20140913
  6. INDAPAMIDE\PERINDOPRIL ARGININE [Interacting]
     Active Substance: INDAPAMIDE\PERINDOPRIL ARGININE
     Indication: Essential hypertension
     Dosage: 5 MG / 1,25 MG 1-0-0-0
     Route: 048
     Dates: start: 20140913
  7. AMISULPRIDE [Interacting]
     Active Substance: AMISULPRIDE
     Indication: Anxiety
     Dosage: 100 MG 1-0-1
     Route: 048
     Dates: start: 20200731
  8. AMISULPRIDE [Interacting]
     Active Substance: AMISULPRIDE
     Indication: Sleep disorder
     Dosage: 100 MG 1-0-1
     Route: 048
     Dates: start: 20200731
  9. AMISULPRIDE [Interacting]
     Active Substance: AMISULPRIDE
     Indication: Restlessness
     Dosage: 100 MG 1-0-1
     Route: 048
     Dates: start: 20200731

REACTIONS (3)
  - Death [Fatal]
  - Multiple organ dysfunction syndrome [Fatal]
  - Drug interaction [Unknown]

NARRATIVE: CASE EVENT DATE: 20210101
